FAERS Safety Report 15758634 (Version 13)
Quarter: 2021Q3

REPORT INFORMATION
  Report Type: Report from Study
  Country: DE (occurrence: DE)
  Receive Date: 20181225
  Receipt Date: 20210925
  Transmission Date: 20211014
  Serious: Yes (Other)
  Sender: FDA-Public Use
  Company Number: PHHY2018DE192982

PATIENT
  Age: 58 Year
  Sex: Male

DRUGS (4)
  1. COSENTYX [Suspect]
     Active Substance: SECUKINUMAB
     Dosage: 300 MG, UNKNOWN
     Route: 065
     Dates: start: 20160616, end: 20180125
  2. COSENTYX [Suspect]
     Active Substance: SECUKINUMAB
     Dosage: 300 MG, UNKNOWN
     Route: 065
     Dates: start: 20210709
  3. COSENTYX [Suspect]
     Active Substance: SECUKINUMAB
     Indication: PSORIATIC ARTHROPATHY
     Dosage: 300 MG, UNKNOWN
     Route: 065
     Dates: start: 20160421, end: 20160615
  4. COSENTYX [Suspect]
     Active Substance: SECUKINUMAB
     Dosage: 300 MG, UNKNOWN
     Route: 065
     Dates: start: 20180223, end: 20210528

REACTIONS (7)
  - Psoriatic arthropathy [Not Recovered/Not Resolved]
  - Psoriatic arthropathy [Recovered/Resolved]
  - Nasopharyngitis [Recovered/Resolved]
  - Deafness unilateral [Recovered/Resolved]
  - Femur fracture [Not Recovered/Not Resolved]
  - Dry eye [Recovered/Resolved]
  - Device loosening [Not Recovered/Not Resolved]

NARRATIVE: CASE EVENT DATE: 20180314
